FAERS Safety Report 9320704 (Version 1)
Quarter: 2013Q2

REPORT INFORMATION
  Report Type: Spontaneous
  Country: US (occurrence: US)
  Receive Date: 20130531
  Receipt Date: 20130531
  Transmission Date: 20140414
  Serious: No
  Sender: FDA-Public Use
  Company Number: US-BIOGENIDEC-2013BI047669

PATIENT
  Age: 37 Year
  Sex: Female

DRUGS (2)
  1. TYSABRI [Suspect]
     Indication: MULTIPLE SCLEROSIS
     Route: 042
     Dates: start: 20130517
  2. AVONEX [Concomitant]
     Indication: MULTIPLE SCLEROSIS
     Route: 030
     Dates: start: 20030126

REACTIONS (5)
  - Myalgia [Recovered/Resolved]
  - Fatigue [Recovered/Resolved]
  - Infusion site pain [Recovered/Resolved]
  - Infusion site bruising [Not Recovered/Not Resolved]
  - Arthralgia [Recovered/Resolved]
